FAERS Safety Report 23634872 (Version 15)
Quarter: 2025Q2

REPORT INFORMATION
  Report Type: Spontaneous
  Country: CA (occurrence: CA)
  Receive Date: 20240315
  Receipt Date: 20250509
  Transmission Date: 20250717
  Serious: Yes (Hospitalization)
  Sender: CELLTRION
  Company Number: CA-CELLTRION INC.-2024CA004339

PATIENT

DRUGS (27)
  1. INFLECTRA [Suspect]
     Active Substance: INFLIXIMAB-DYYB
     Indication: Crohn^s disease
     Route: 042
     Dates: start: 20230130, end: 20231024
  2. INFLECTRA [Suspect]
     Active Substance: INFLIXIMAB-DYYB
     Route: 042
     Dates: start: 20231121
  3. INFLECTRA [Suspect]
     Active Substance: INFLIXIMAB-DYYB
     Route: 042
     Dates: start: 20240116
  4. INFLECTRA [Suspect]
     Active Substance: INFLIXIMAB-DYYB
     Route: 042
     Dates: start: 20240213
  5. INFLECTRA [Suspect]
     Active Substance: INFLIXIMAB-DYYB
     Route: 042
     Dates: start: 20240404
  6. INFLECTRA [Suspect]
     Active Substance: INFLIXIMAB-DYYB
     Route: 042
     Dates: start: 20240503
  7. INFLECTRA [Suspect]
     Active Substance: INFLIXIMAB-DYYB
     Route: 042
     Dates: start: 20240529
  8. INFLECTRA [Suspect]
     Active Substance: INFLIXIMAB-DYYB
     Route: 042
     Dates: start: 20240723
  9. INFLECTRA [Suspect]
     Active Substance: INFLIXIMAB-DYYB
     Route: 042
     Dates: start: 20240820
  10. INFLECTRA [Suspect]
     Active Substance: INFLIXIMAB-DYYB
     Route: 042
     Dates: start: 20240917
  11. INFLECTRA [Suspect]
     Active Substance: INFLIXIMAB-DYYB
     Route: 042
     Dates: start: 20241015
  12. INFLECTRA [Suspect]
     Active Substance: INFLIXIMAB-DYYB
     Route: 042
     Dates: start: 20241112
  13. INFLECTRA [Suspect]
     Active Substance: INFLIXIMAB-DYYB
     Route: 042
     Dates: start: 20241210
  14. INFLECTRA [Suspect]
     Active Substance: INFLIXIMAB-DYYB
     Route: 042
     Dates: start: 20250107
  15. INFLECTRA [Suspect]
     Active Substance: INFLIXIMAB-DYYB
     Route: 042
     Dates: start: 20250205
  16. INFLECTRA [Suspect]
     Active Substance: INFLIXIMAB-DYYB
     Route: 042
     Dates: start: 20250304
  17. INFLECTRA [Suspect]
     Active Substance: INFLIXIMAB-DYYB
     Route: 042
     Dates: start: 20250402
  18. INFLECTRA [Suspect]
     Active Substance: INFLIXIMAB-DYYB
     Route: 042
     Dates: start: 20250430
  19. BUPROPION [Concomitant]
     Active Substance: BUPROPION
  20. CALCIUM [Concomitant]
     Active Substance: CALCIUM
  21. CANDESARTAN [Concomitant]
     Active Substance: CANDESARTAN
  22. CLONAZEPAM [Concomitant]
     Active Substance: CLONAZEPAM
     Indication: Anxiety
  23. FLOVENT [Concomitant]
     Active Substance: FLUTICASONE PROPIONATE
  24. PREDNISONE [Concomitant]
     Active Substance: PREDNISONE
  25. ALBUTEROL [Concomitant]
     Active Substance: ALBUTEROL
  26. SERTRALINE [Concomitant]
     Active Substance: SERTRALINE HYDROCHLORIDE
     Indication: Anxiety
  27. CHOLECALCIFEROL [Concomitant]
     Active Substance: CHOLECALCIFEROL

REACTIONS (8)
  - Intestinal resection [Recovering/Resolving]
  - Condition aggravated [Recovering/Resolving]
  - Arthralgia [Not Recovered/Not Resolved]
  - Rotator cuff syndrome [Unknown]
  - Inguinal hernia [Unknown]
  - Abdominal hernia [Unknown]
  - Erythema nodosum [Not Recovered/Not Resolved]
  - Off label use [Unknown]

NARRATIVE: CASE EVENT DATE: 20240101
